FAERS Safety Report 8936858 (Version 1)
Quarter: 2012Q4

REPORT INFORMATION
  Report Type: 
  Country: US (occurrence: US)
  Receive Date: 20121130
  Receipt Date: 20121130
  Transmission Date: 20130627
  Serious: No
  Sender: FDA-Public Use
  Company Number: US-PFIZER INC-2012301359

PATIENT
  Age: 59 Year
  Sex: Female
  Weight: 91.61 kg

DRUGS (3)
  1. GABAPENTIN [Suspect]
     Indication: DIABETIC PERIPHERAL NEUROPATHY
     Dosage: 600 mg, 3x/day
     Route: 048
     Dates: start: 2011
  2. GABAPENTIN [Suspect]
     Indication: DIABETIC PERIPHERAL NEUROPATHY
  3. NEXIUM [Concomitant]
     Dosage: UNK

REACTIONS (3)
  - Headache [Unknown]
  - Dizziness [Unknown]
  - Drug ineffective [Unknown]
